FAERS Safety Report 6268693-4 (Version None)
Quarter: 2009Q3

REPORT INFORMATION
  Report Type: 
  Country: None (occurrence: None)
  Receive Date: 20090714
  Receipt Date: 20090714
  Transmission Date: 20100115
  Serious: No
  Sender: FDA-Public Use
  Company Number: None

PATIENT
  Sex: Female
  Weight: 65.7716 kg

DRUGS (1)
  1. LYRICA [Suspect]
     Indication: FIBROMYALGIA
     Dosage: 50MG BID PO
     Route: 048
     Dates: start: 20090301, end: 20090713

REACTIONS (2)
  - OEDEMA [None]
  - WEIGHT INCREASED [None]
